FAERS Safety Report 8166109-4 (Version None)
Quarter: 2012Q1

REPORT INFORMATION
  Report Type: 
  Country: None (occurrence: None)
  Receive Date: 20120227
  Receipt Date: 20110405
  Transmission Date: 20120608
  Serious: No
  Sender: FDA-Public Use
  Company Number: US-MYLANLABS-2011S1006101

PATIENT
  Age: 56 Year
  Sex: Male

DRUGS (6)
  1. CLARAVIS [Suspect]
     Indication: ACNE
     Route: 048
     Dates: start: 20110101, end: 20110101
  2. AMNESTEEM [Suspect]
     Route: 048
  3. VITAMIN B C COMPLEX [Concomitant]
  4. POTASSIUM CHLORIDE [Concomitant]
  5. CLARITIN /00917501/ [Concomitant]
  6. AMNESTEEM [Suspect]
     Indication: ACNE
     Route: 048
     Dates: start: 20110201, end: 20110301

REACTIONS (1)
  - PNEUMONIA [None]
